FAERS Safety Report 8330321-1 (Version None)
Quarter: 2012Q2

REPORT INFORMATION
  Report Type: 
  Country: None (occurrence: None)
  Receive Date: 20120502
  Receipt Date: 20120420
  Transmission Date: 20120825
  Serious: Yes (Hospitalization, Other)
  Sender: FDA-Public Use
  Company Number: US-ACTELION-A-US2008-19717

PATIENT

DRUGS (4)
  1. OXYGEN [Concomitant]
  2. TRACLEER [Suspect]
     Indication: PULMONARY HYPERTENSION
     Dosage: UNK MG, UNK
     Route: 048
     Dates: start: 20051031
  3. ADCIRCA [Concomitant]
  4. CALCIUM CHANNEL BLOCKERS [Concomitant]

REACTIONS (18)
  - COUGH [None]
  - RENAL FAILURE [None]
  - OBSTRUCTIVE AIRWAYS DISORDER [None]
  - BLOOD COUNT ABNORMAL [None]
  - ANAEMIA [None]
  - URINARY TRACT INFECTION [None]
  - DEHYDRATION [None]
  - PULMONARY MASS [None]
  - PYREXIA [None]
  - NEUROPATHY PERIPHERAL [None]
  - MACULAR DEGENERATION [None]
  - BRONCHITIS [None]
  - DYSPNOEA [None]
  - FALL [None]
  - CONTUSION [None]
  - PAIN [None]
  - CHRONIC OBSTRUCTIVE PULMONARY DISEASE [None]
  - PNEUMONIA [None]
